FAERS Safety Report 13089915 (Version 1)
Quarter: 2017Q1

REPORT INFORMATION
  Report Type: Spontaneous
  Country: DK (occurrence: DK)
  Receive Date: 20170105
  Receipt Date: 20170105
  Transmission Date: 20170428
  Serious: Yes (Hospitalization, Other)
  Sender: FDA-Public Use
  Company Number: DK-BAUSCH-BL-2017-000327

PATIENT
  Age: 84 Year
  Sex: Male

DRUGS (6)
  1. VEPESID [Concomitant]
     Active Substance: ETOPOSIDE
     Indication: PRODUCT USED FOR UNKNOWN INDICATION
     Dates: start: 20160404, end: 2016
  2. LEUKERAN [Concomitant]
     Active Substance: CHLORAMBUCIL
     Indication: PRODUCT USED FOR UNKNOWN INDICATION
     Dates: start: 20160111
  3. LOCOID [Suspect]
     Active Substance: HYDROCORTISONE BUTYRATE
     Indication: PRODUCT USED FOR UNKNOWN INDICATION
     Route: 065
     Dates: start: 20140717
  4. PREDNISOLONE. [Suspect]
     Active Substance: PREDNISOLONE
     Indication: PRODUCT USED FOR UNKNOWN INDICATION
     Route: 065
     Dates: start: 201505
  5. PREDNISOLONE. [Suspect]
     Active Substance: PREDNISOLONE
     Dosage: DECREASED DOSE
     Route: 065
  6. ELOCON [Concomitant]
     Active Substance: MOMETASONE FUROATE
     Indication: PRODUCT USED FOR UNKNOWN INDICATION
     Dates: start: 20140717

REACTIONS (11)
  - Rales [Unknown]
  - Herpes zoster [Unknown]
  - Dermatitis exfoliative [Unknown]
  - Skin disorder [Not Recovered/Not Resolved]
  - Skin depigmentation [Unknown]
  - Infection [Unknown]
  - Skin haemorrhage [Not Recovered/Not Resolved]
  - Rash pustular [Not Recovered/Not Resolved]
  - T-cell lymphoma [Unknown]
  - Skin atrophy [Unknown]
  - Osteoporosis [Unknown]

NARRATIVE: CASE EVENT DATE: 20140908
